FAERS Safety Report 4588209-8 (Version None)
Quarter: 2005Q1

REPORT INFORMATION
  Report Type: 
  Country: None (occurrence: None)
  Receive Date: 20050221
  Receipt Date: 20040713
  Transmission Date: 20050727
  Serious: Yes (Life-Threatening, Hospitalization)
  Sender: FDA-Public Use
  Company Number: JP-ROCHE-375851

PATIENT
  Age: 24 Year
  Sex: Female
  Weight: 44 kg

DRUGS (7)
  1. TAMIFLU [Suspect]
     Route: 048
     Dates: start: 20040113, end: 20040115
  2. CRAVIT [Suspect]
     Indication: BACTERIAL INFECTION
     Route: 048
     Dates: start: 20040113, end: 20040115
  3. PELEX [Concomitant]
     Route: 048
  4. NARCOTINE [Concomitant]
     Route: 048
  5. ASTOMIN [Concomitant]
     Route: 048
  6. LYSOZYME HYDROCHLORIDE [Concomitant]
     Route: 048
  7. SURGAM [Concomitant]
     Route: 048

REACTIONS (6)
  - BACTERIAL INFECTION [None]
  - HAEMODIALYSIS [None]
  - HAEMOLYTIC ANAEMIA [None]
  - JAUNDICE [None]
  - RENAL FAILURE ACUTE [None]
  - THROMBOTIC THROMBOCYTOPENIC PURPURA [None]
